FAERS Safety Report 6401672-2 (Version None)
Quarter: 2009Q4

REPORT INFORMATION
  Report Type: 
  Country: None (occurrence: None)
  Receive Date: 20091015
  Receipt Date: 20091005
  Transmission Date: 20100525
  Serious: Yes (Hospitalization)
  Sender: FDA-Public Use
  Company Number: US-ELI_LILLY_AND_COMPANY-US200910000933

PATIENT
  Sex: Female

DRUGS (3)
  1. FORTEO [Suspect]
     Dosage: UNK, UNK
     Dates: start: 20090701
  2. CALCIUM [Concomitant]
     Dosage: 1200 MG, UNK
  3. VITAMIN D [Concomitant]
     Dosage: 800 IU, UNK

REACTIONS (8)
  - ARTHRALGIA [None]
  - CONSTIPATION [None]
  - LUMBAR VERTEBRAL FRACTURE [None]
  - MUSCLE SPASMS [None]
  - MUSCULOSKELETAL PAIN [None]
  - PAIN IN EXTREMITY [None]
  - THORACIC VERTEBRAL FRACTURE [None]
  - WEIGHT DECREASED [None]
